FAERS Safety Report 14836630 (Version 3)
Quarter: 2019Q2

REPORT INFORMATION
  Report Type: Spontaneous
  Country: US (occurrence: US)
  Receive Date: 20180502
  Receipt Date: 20190426
  Transmission Date: 20190711
  Serious: Yes (Other)
  Sender: FDA-Public Use
  Company Number: US-ASTRAZENECA-2018SE55559

PATIENT
  Sex: Female
  Weight: 147.2 kg

DRUGS (18)
  1. ASPIRIN. [Concomitant]
     Active Substance: ASPIRIN
     Route: 048
  2. TRAMADOL. [Concomitant]
     Active Substance: TRAMADOL
     Route: 048
  3. TIZANIDINE. [Concomitant]
     Active Substance: TIZANIDINE
     Route: 048
  4. MECLIZINE [Concomitant]
     Active Substance: MECLIZINE HYDROCHLORIDE
     Route: 048
  5. SERTRALINE [Concomitant]
     Active Substance: SERTRALINE HYDROCHLORIDE
     Route: 048
  6. ONDANSETRON [Concomitant]
     Active Substance: ONDANSETRON
     Route: 048
  7. AMLODIPINE [Concomitant]
     Active Substance: AMLODIPINE BESYLATE
     Route: 048
  8. DIPHENHYDRAMINE. [Concomitant]
     Active Substance: DIPHENHYDRAMINE
     Route: 048
  9. BENZONATATE. [Concomitant]
     Active Substance: BENZONATATE
     Route: 048
  10. NEXIUM [Suspect]
     Active Substance: ESOMEPRAZOLE MAGNESIUM
     Indication: GASTROOESOPHAGEAL REFLUX DISEASE
     Route: 048
     Dates: start: 2013
  11. NEXIUM [Suspect]
     Active Substance: ESOMEPRAZOLE MAGNESIUM
     Indication: GASTROOESOPHAGEAL REFLUX DISEASE
     Route: 048
     Dates: start: 20130629
  12. ATENOLOL. [Concomitant]
     Active Substance: ATENOLOL
     Route: 048
     Dates: start: 20160306
  13. HYDROCHLOROTHIAZIDE. [Concomitant]
     Active Substance: HYDROCHLOROTHIAZIDE
     Route: 048
  14. NEXIUM [Suspect]
     Active Substance: ESOMEPRAZOLE MAGNESIUM
     Indication: GASTROOESOPHAGEAL REFLUX DISEASE
     Route: 048
  15. PREDNISONE. [Concomitant]
     Active Substance: PREDNISONE
     Route: 048
  16. LUBIPROSTONE [Concomitant]
     Active Substance: LUBIPROSTONE
     Route: 048
  17. GABAPENTIN. [Concomitant]
     Active Substance: GABAPENTIN
     Route: 048
  18. LOSARTAN. [Concomitant]
     Active Substance: LOSARTAN
     Route: 048

REACTIONS (1)
  - Acute kidney injury [Not Recovered/Not Resolved]
